FAERS Safety Report 16630460 (Version 3)
Quarter: 2021Q3

REPORT INFORMATION
  Report Type: Spontaneous
  Country: NO (occurrence: NO)
  Receive Date: 20190725
  Receipt Date: 20210705
  Transmission Date: 20211014
  Serious: Yes (Death, Other)
  Sender: FDA-Public Use
  Company Number: NO-AMGEN-NORSP2019117420

PATIENT
  Age: 59 Year
  Sex: Male

DRUGS (3)
  1. PANITUMUMAB [Suspect]
     Active Substance: PANITUMUMAB
     Indication: CANCER PAIN
  2. PANITUMUMAB [Suspect]
     Active Substance: PANITUMUMAB
     Indication: NEURALGIA
     Dosage: 6 MILLIGRAM/KILOGRAM
     Route: 042
  3. PANITUMUMAB [Suspect]
     Active Substance: PANITUMUMAB
     Indication: OFF LABEL USE

REACTIONS (4)
  - Death [Fatal]
  - Skin toxicity [Unknown]
  - Drug effective for unapproved indication [Unknown]
  - Off label use [Unknown]
